FAERS Safety Report 7642148-4 (Version None)
Quarter: 2011Q3

REPORT INFORMATION
  Report Type: 
  Country: None (occurrence: None)
  Receive Date: 20110722
  Receipt Date: 20110713
  Transmission Date: 20111222
  Serious: Yes (Hospitalization, Other)
  Sender: FDA-Public Use
  Company Number: DSA_47171_2011

PATIENT
  Age: 48 Year
  Sex: Female

DRUGS (2)
  1. CYMBALTA [Concomitant]
  2. WELLBUTRIN XL [Suspect]
     Indication: PRODUCT USED FOR UNKNOWN INDICATION
     Dosage: 300 MG, QD, ORAL
     Route: 048

REACTIONS (15)
  - EXTRAOCULAR MUSCLE DISORDER [None]
  - VIRAL UPPER RESPIRATORY TRACT INFECTION [None]
  - INAPPROPRIATE AFFECT [None]
  - ABNORMAL BEHAVIOUR [None]
  - GAIT DISTURBANCE [None]
  - BALANCE DISORDER [None]
  - INCORRECT DOSE ADMINISTERED [None]
  - NEUROLOGICAL EXAMINATION ABNORMAL [None]
  - SPEECH DISORDER [None]
  - HEART RATE INCREASED [None]
  - FALL [None]
  - PUPILS UNEQUAL [None]
  - CONFUSIONAL STATE [None]
  - BLOOD PRESSURE SYSTOLIC INCREASED [None]
  - MALAISE [None]
